FAERS Safety Report 9769065 (Version 1)
Quarter: 2013Q4

REPORT INFORMATION
  Report Type: Spontaneous
  Country: US (occurrence: None)
  Receive Date: 20131217
  Receipt Date: 20131217
  Transmission Date: 20140711
  Serious: Yes (Other)
  Sender: FDA-Public Use
  Company Number: None

PATIENT
  Age: 49 Year
  Sex: Female
  Weight: 61.24 kg

DRUGS (1)
  1. VYVANSE [Suspect]
     Dosage: TAKEN BY MOUTH
     Dates: start: 20081201, end: 20131216

REACTIONS (3)
  - Mood swings [None]
  - Product packaging quantity issue [None]
  - Abnormal behaviour [None]
